FAERS Safety Report 19772766 (Version 1)
Quarter: 2021Q3

REPORT INFORMATION
  Report Type: Spontaneous
  Country: US (occurrence: US)
  Receive Date: 20210831
  Receipt Date: 20210831
  Transmission Date: 20211014
  Serious: Yes (Death, Hospitalization, Other)
  Sender: FDA-Public Use
  Company Number: US-ALXN-A202109632

PATIENT
  Age: 26 Year
  Sex: Female

DRUGS (1)
  1. SOLIRIS [Suspect]
     Active Substance: ECULIZUMAB
     Indication: ATYPICAL HAEMOLYTIC URAEMIC SYNDROME
     Route: 042
     Dates: start: 2021, end: 20210701

REACTIONS (30)
  - Cholecystitis acute [Recovered/Resolved]
  - Neuropathy peripheral [Not Recovered/Not Resolved]
  - Encephalopathy [Unknown]
  - Haptoglobin decreased [Unknown]
  - Platelet count abnormal [Unknown]
  - Haemoglobin decreased [Unknown]
  - Hyporeflexia [Not Recovered/Not Resolved]
  - Biliary obstruction [Unknown]
  - Pain in extremity [Unknown]
  - Transaminases increased [Recovered/Resolved]
  - Polyuria [Unknown]
  - Exposure during pregnancy [Unknown]
  - Pneumonia pseudomonal [Recovered/Resolved]
  - Peripartum cardiomyopathy [Not Recovered/Not Resolved]
  - Urine bilirubin increased [Not Recovered/Not Resolved]
  - Mental impairment [Unknown]
  - Blood urine present [Not Recovered/Not Resolved]
  - Liver function test abnormal [Unknown]
  - Asthenia [Not Recovered/Not Resolved]
  - Fungaemia [Recovered/Resolved]
  - Blood bilirubin increased [Not Recovered/Not Resolved]
  - Myopathy [Not Recovered/Not Resolved]
  - Chromaturia [Not Recovered/Not Resolved]
  - Haemolytic anaemia [Unknown]
  - Proteinuria [Unknown]
  - Decreased appetite [Unknown]
  - Foetal death [Fatal]
  - Ejection fraction abnormal [Not Recovered/Not Resolved]
  - Glucose urine present [Not Recovered/Not Resolved]
  - Haemoglobin urine present [Not Recovered/Not Resolved]

NARRATIVE: CASE EVENT DATE: 2021
